FAERS Safety Report 26144498 (Version 1)
Quarter: 2025Q4

REPORT INFORMATION
  Report Type: Spontaneous
  Country: CH (occurrence: CH)
  Receive Date: 20251211
  Receipt Date: 20251211
  Transmission Date: 20260117
  Serious: Yes (Life-Threatening, Other)
  Sender: TEVA
  Company Number: None

PATIENT
  Age: 81 Year
  Sex: Male
  Weight: 73.5 kg

DRUGS (14)
  1. TORSEMIDE [Suspect]
     Active Substance: TORSEMIDE
     Indication: Product used for unknown indication
     Dosage: 1-0-0-0, TORASEMIDE MEPHA
     Route: 048
     Dates: start: 20241224, end: 20251101
  2. ENTRESTO [Concomitant]
     Active Substance: SACUBITRIL\VALSARTAN
     Indication: Product used for unknown indication
     Dosage: 1-0-1-0
     Route: 048
     Dates: start: 20241224, end: 20251101
  3. ALDACTONE [Suspect]
     Active Substance: SPIRONOLACTONE
     Indication: Product used for unknown indication
     Dosage: 1-0-0-0
     Route: 048
     Dates: start: 20241224, end: 20251101
  4. CHOLECALCIFEROL [Concomitant]
     Active Substance: CHOLECALCIFEROL
     Indication: Product used for unknown indication
     Route: 065
     Dates: start: 202509, end: 20251114
  5. BISOPROLOL MEPHA [Concomitant]
     Indication: Product used for unknown indication
     Dosage: 1-0-0.5-0
     Route: 048
     Dates: start: 202501, end: 20251114
  6. BISOPROLOL MEPHA [Concomitant]
     Indication: Product used for unknown indication
     Route: 048
     Dates: start: 202501, end: 20251114
  7. PANTOPRAZOLE SODIUM [Concomitant]
     Active Substance: PANTOPRAZOLE SODIUM
     Indication: Product used for unknown indication
     Dosage: 1-0-0-0
     Route: 048
     Dates: start: 20241224, end: 20251114
  8. MAGNESIUM [Concomitant]
     Active Substance: MAGNESIUM
     Indication: Product used for unknown indication
     Dosage: 0-0-1-0
     Route: 048
     Dates: start: 20241224, end: 20251101
  9. DAPAGLIFLOZIN [Concomitant]
     Active Substance: DAPAGLIFLOZIN
     Indication: Product used for unknown indication
     Dosage: 1-0-0-0
     Route: 048
     Dates: start: 20241224, end: 20251101
  10. DAFALGAN [Suspect]
     Active Substance: ACETAMINOPHEN
     Indication: Product used for unknown indication
     Dosage: TIME INTERVAL: AS NECESSARY
     Route: 048
     Dates: start: 202509, end: 20251107
  11. SODIUM PICOSULFATE [Concomitant]
     Active Substance: SODIUM PICOSULFATE
     Indication: Product used for unknown indication
     Dosage: 0-0-10 GTT.-0
     Route: 065
     Dates: start: 20241224, end: 20251114
  12. ELIQUIS [Suspect]
     Active Substance: APIXABAN
     Indication: Product used for unknown indication
     Dosage: 1-0-1-0
     Route: 048
     Dates: start: 20241210, end: 20251101
  13. CALCIUM\CHOLECALCIFEROL [Concomitant]
     Active Substance: CALCIUM\CHOLECALCIFEROL
     Indication: Product used for unknown indication
     Dosage: 500 MG/ 800 IU, 0-1-0-0
     Route: 048
     Dates: start: 202509, end: 20251114
  14. ANORO ELLIPTA [Concomitant]
     Active Substance: UMECLIDINIUM BROMIDE\VILANTEROL TRIFENATATE
     Indication: Product used for unknown indication
     Dosage: 55 MCG/ 22  G,1-0-0-0
     Route: 065
     Dates: start: 20241224, end: 20251114

REACTIONS (2)
  - Immune thrombocytopenia [Recovering/Resolving]
  - Gastrointestinal haemorrhage [Recovering/Resolving]

NARRATIVE: CASE EVENT DATE: 20251101
